FAERS Safety Report 13080805 (Version 2)
Quarter: 2017Q1

REPORT INFORMATION
  Report Type: Spontaneous
  Country: US (occurrence: US)
  Receive Date: 20170103
  Receipt Date: 20170127
  Transmission Date: 20170428
  Serious: Yes (Other)
  Sender: FDA-Public Use
  Company Number: US-PFIZER INC-2016600352

PATIENT
  Age: 34 Year
  Sex: Female

DRUGS (2)
  1. XANAX [Suspect]
     Active Substance: ALPRAZOLAM
     Indication: PSYCHOTIC DISORDER
     Dosage: 1 MG, 3X/DAY, AS NEEDED
     Dates: start: 200110, end: 20161115
  2. XANAX [Suspect]
     Active Substance: ALPRAZOLAM
     Indication: PANIC DISORDER
     Dosage: 2 MG, UNK
     Dates: start: 20161113

REACTIONS (2)
  - Catatonia [Recovered/Resolved]
  - Apparent death [Recovered/Resolved]
